FAERS Safety Report 5389161-8 (Version None)
Quarter: 2007Q3

REPORT INFORMATION
  Report Type: 
  Country: None (occurrence: None)
  Receive Date: 20070713
  Receipt Date: 20070713
  Transmission Date: 20080115
  Serious: Yes (Life-Threatening, Hospitalization)
  Sender: FDA-Public Use
  Company Number: None

PATIENT
  Age: 77 Year
  Sex: Male

DRUGS (2)
  1. GLYBURIDE [Suspect]
     Indication: DIABETES MELLITUS
     Dosage: 10MG BID PO
     Route: 048
     Dates: start: 19980914, end: 20070602
  2. ROSIGLITAZONE [Suspect]
     Dosage: 8MG EVERY DAY PO
     Route: 048
     Dates: start: 20001016, end: 20070602

REACTIONS (1)
  - HYPOGLYCAEMIA [None]
